FAERS Safety Report 13727134 (Version 1)
Quarter: 2017Q3

REPORT INFORMATION
  Report Type: Spontaneous
  Country: US (occurrence: US)
  Receive Date: 20170706
  Receipt Date: 20170706
  Transmission Date: 20171127
  Serious: Yes (Other)
  Sender: FDA-Public Use
  Company Number: US-BAUSCH-BL-2017-020389

PATIENT
  Age: 61 Year
  Sex: Female

DRUGS (4)
  1. SOOTHE HYDRATION [Suspect]
     Active Substance: POVIDONE
     Dosage: 3 SEPERATE OCCASION
     Route: 047
  2. LASIX [Concomitant]
     Active Substance: FUROSEMIDE
     Indication: HYPERTENSION
     Dosage: YEARS AGO
     Route: 048
  3. SOOTHE HYDRATION [Suspect]
     Active Substance: POVIDONE
     Indication: EYE LUBRICATION THERAPY
     Dosage: AS NEEDED
     Route: 047
  4. METOPROLOL. [Concomitant]
     Active Substance: METOPROLOL
     Indication: HYPERTENSION
     Dosage: YEARS AGO
     Route: 048

REACTIONS (3)
  - Eye irritation [Recovered/Resolved]
  - Stenosis [Recovered/Resolved]
  - Aortic aneurysm [Recovered/Resolved]

NARRATIVE: CASE EVENT DATE: 201706
